FAERS Safety Report 14328865 (Version 1)
Quarter: 2017Q4

REPORT INFORMATION
  Report Type: Not Available
  Country: None (occurrence: US)
  Receive Date: 20171227
  Receipt Date: 20171227
  Transmission Date: 20180321
  Serious: Yes (Other)
  Sender: FDA-Public Use
  Company Number: US-AKORN-75760

PATIENT
  Sex: Female

DRUGS (1)
  1. MOISTURIZING LUBRICANT- CARBOXYMETHYLCELLULOSE SODIUM SOLUTION/ DROPS [Suspect]
     Active Substance: CARBOXYMETHYLCELLULOSE SODIUM

REACTIONS (7)
  - Instillation site pain [None]
  - Eye pain [Recovered/Resolved]
  - Instillation site pruritus [None]
  - Eye pruritus [Recovered/Resolved]
  - Eye infection bacterial [Recovered/Resolved]
  - Instillation site infection [None]
  - Product contamination microbial [None]
